FAERS Safety Report 8095802-7 (Version None)
Quarter: 2012Q1

REPORT INFORMATION
  Report Type: 
  Country: None (occurrence: None)
  Receive Date: 20120129
  Receipt Date: 20111208
  Transmission Date: 20120608
  Serious: Yes (Other)
  Sender: FDA-Public Use
  Company Number: US-ABBOTT-11P-163-0883152-00

PATIENT
  Sex: Female

DRUGS (8)
  1. ARAVA [Concomitant]
     Indication: ARTHRITIS
     Dosage: DAILY
  2. LOPRESSOR [Concomitant]
     Indication: HYPERTENSION
     Dosage: DAILY
  3. LISINOPRIL [Concomitant]
     Indication: HYPERTENSION
     Dosage: DAILY
  4. HUMIRA [Suspect]
     Indication: RHEUMATOID ARTHRITIS
     Route: 058
     Dates: start: 20090101
  5. NORVASC [Concomitant]
     Indication: HYPERTENSION
     Dosage: DAILY
  6. PERCOCET [Concomitant]
     Indication: ARTHRALGIA
  7. VITAMIN D [Concomitant]
     Indication: PRODUCT USED FOR UNKNOWN INDICATION
     Dosage: 50,000 UNITS WEEKLY
  8. NEURONTIN [Concomitant]
     Indication: BURNING SENSATION
     Dosage: 300MG AM, 300MG PM, 600 MG AT NIGHT

REACTIONS (4)
  - BLOOD CHOLESTEROL INCREASED [None]
  - SINUSITIS [None]
  - ARTHRALGIA [None]
  - ARTHRITIS [None]
